FAERS Safety Report 24567399 (Version 5)
Quarter: 2025Q3

REPORT INFORMATION
  Report Type: Report from Study
  Country: CA (occurrence: CA)
  Receive Date: 20241030
  Receipt Date: 20250803
  Transmission Date: 20251020
  Serious: Yes (Other)
  Sender: ALEXION PHARMACEUTICALS
  Company Number: CA-AstraZeneca-CH-00733991A

PATIENT
  Age: 49 Year
  Sex: Male

DRUGS (13)
  1. BENRALIZUMAB [Suspect]
     Active Substance: BENRALIZUMAB
     Indication: Asthma
  2. BENRALIZUMAB [Suspect]
     Active Substance: BENRALIZUMAB
  3. PREDNISONE [Concomitant]
     Active Substance: PREDNISONE
  4. PREDNISONE [Concomitant]
     Active Substance: PREDNISONE
  5. TRELEGY ELLIPTA [Concomitant]
     Active Substance: FLUTICASONE FUROATE\UMECLIDINIUM BROMIDE\VILANTEROL TRIFENATATE
     Route: 065
  6. VENTOLIN [Concomitant]
     Active Substance: ALBUTEROL SULFATE
     Route: 065
  7. FLOVENT [Concomitant]
     Active Substance: FLUTICASONE PROPIONATE
     Route: 065
  8. PANTOPRAZOLE SODIUM [Concomitant]
     Active Substance: PANTOPRAZOLE SODIUM
  9. BUPROPION [Concomitant]
     Active Substance: BUPROPION
  10. VITAMINS [Concomitant]
     Active Substance: VITAMINS
  11. VITAMIN D [Concomitant]
     Active Substance: VITAMIN D NOS
  12. IRON [Concomitant]
     Active Substance: IRON
  13. OLMESARTAN [Concomitant]
     Active Substance: OLMESARTAN

REACTIONS (7)
  - Hypertension [Not Recovered/Not Resolved]
  - Ocular discomfort [Unknown]
  - Malaise [Unknown]
  - Hypersomnia [Unknown]
  - Headache [Unknown]
  - Eye pain [Unknown]
  - Dizziness [Unknown]
